FAERS Safety Report 5267952-1 (Version None)
Quarter: 2007Q1

REPORT INFORMATION
  Report Type: 
  Country: None (occurrence: None)
  Receive Date: 20061213
  Receipt Date: 20030326
  Transmission Date: 20070707
  Serious: No
  Sender: FDA-Public Use
  Company Number: 2001UW15875

PATIENT
  Age: 65 Year
  Sex: Female
  Weight: 56.246 kg

DRUGS (7)
  1. ARIMIDEX [Suspect]
     Indication: BREAST CANCER
     Dosage: 1 MG QD PO
     Route: 048
     Dates: start: 19970430
  2. NOLVADEX [Suspect]
     Indication: BREAST CANCER
     Dosage: 20 MG QD PO
     Route: 048
     Dates: start: 19970430
  3. VERAPAMIL [Concomitant]
  4. TYLENOL EXTRA-STRENGTH [Concomitant]
  5. FOLIC ACID [Concomitant]
  6. VITAMIN E [Concomitant]
  7. PRAVACHOL [Concomitant]

REACTIONS (1)
  - CATARACT [None]
